FAERS Safety Report 17490150 (Version 1)
Quarter: 2020Q1

REPORT INFORMATION
  Report Type: Spontaneous
  Country: US (occurrence: US)
  Receive Date: 20200303
  Receipt Date: 20200303
  Transmission Date: 20200409
  Serious: No
  Sender: FDA-Public Use
  Company Number: US-AKORN PHARMACEUTICALS-2020AKN00063

PATIENT
  Age: 66 Year
  Sex: Female
  Weight: 108.84 kg

DRUGS (4)
  1. HYDROCODONE/ACETAMINOPHEN [Concomitant]
     Active Substance: ACETAMINOPHEN\HYDROCODONE
     Dosage: 1 DOSAGE UNITS, 2X/DAY
  2. MYORISAN [Suspect]
     Active Substance: ISOTRETINOIN
     Indication: ROSACEA
     Dosage: 10 MG, 2X/WEEK ON MONDAY AND FRIDAY
     Route: 048
     Dates: start: 2019, end: 201910
  3. MYORISAN [Suspect]
     Active Substance: ISOTRETINOIN
     Dosage: 20 MG, 1X/WEEK ON WEDNESDAY
     Route: 048
     Dates: start: 2019, end: 201910
  4. ISOTRETINOIN. [Suspect]
     Active Substance: ISOTRETINOIN
     Indication: ROSACEA
     Dosage: UNK
     Dates: start: 2019, end: 201912

REACTIONS (7)
  - Product prescribing error [Not Recovered/Not Resolved]
  - Lip dry [Not Recovered/Not Resolved]
  - Drug ineffective for unapproved indication [Recovered/Resolved]
  - Product dose omission [Not Recovered/Not Resolved]
  - Nasal dryness [Not Recovered/Not Resolved]
  - Rosacea [Recovered/Resolved]
  - Product use in unapproved indication [Unknown]

NARRATIVE: CASE EVENT DATE: 2019
